FAERS Safety Report 7443499-9 (Version None)
Quarter: 2011Q2

REPORT INFORMATION
  Report Type: 
  Country: None (occurrence: None)
  Receive Date: 20110428
  Receipt Date: 20110413
  Transmission Date: 20111010
  Serious: No
  Sender: FDA-Public Use
  Company Number: US-B.I. PHARMACEUTICALS,INC./RIDGEFIELD-2011-BP-10713BP

PATIENT
  Sex: Female

DRUGS (8)
  1. VITAMIN B6 [Concomitant]
     Route: 048
  2. DAILY VITAMIN [Concomitant]
     Route: 048
  3. ZANTAC [Concomitant]
     Indication: GASTROOESOPHAGEAL REFLUX DISEASE
  4. TRIAMETRINE [Concomitant]
     Indication: HYPERTENSION
     Route: 048
  5. ZANTAC [Suspect]
     Indication: BARRETT'S OESOPHAGUS
     Dosage: 300 MG
     Route: 048
     Dates: start: 20110409
  6. CRESTOR [Concomitant]
     Indication: DYSLIPIDAEMIA
     Route: 048
  7. ATENOLOL [Concomitant]
     Indication: HYPERTENSION
     Route: 048
  8. ASPIRIN [Concomitant]
     Route: 048

REACTIONS (1)
  - DRUG INEFFECTIVE [None]
